FAERS Safety Report 6420380-5 (Version None)
Quarter: 2009Q4

REPORT INFORMATION
  Report Type: 
  Country: None (occurrence: None)
  Receive Date: 20091021
  Receipt Date: 20090605
  Transmission Date: 20100525
  Serious: No
  Sender: FDA-Public Use
  Company Number: SPV1-2009-00984

PATIENT
  Age: 38 Year
  Sex: Male
  Weight: 83.9 kg

DRUGS (3)
  1. VYVANSE [Suspect]
     Indication: ATTENTION DEFICIT/HYPERACTIVITY DISORDER
     Dosage: 70 MG, ORAL : 210 MG, (3 X 70MG CAPSULES) ONE DOSE, ORAL
     Route: 048
     Dates: start: 20090310
  2. CLONAZEPAM [Concomitant]
  3. SERTRALINE HCL [Concomitant]

REACTIONS (4)
  - DIZZINESS [None]
  - DRUG ABUSE [None]
  - INTENTIONAL OVERDOSE [None]
  - NAUSEA [None]
